FAERS Safety Report 11618962 (Version 1)
Quarter: 2015Q4

REPORT INFORMATION
  Report Type: Report from Study
  Country: BR (occurrence: BR)
  Receive Date: 20151012
  Receipt Date: 20151012
  Transmission Date: 20160304
  Serious: Yes (Other)
  Sender: FDA-Public Use
  Company Number: BR-ROCHE-1568769

PATIENT
  Age: 62 Year
  Sex: Female
  Weight: 79 kg

DRUGS (14)
  1. ASA, CHILDREN^S [Concomitant]
  2. MODURETIC 5-50 [Concomitant]
     Active Substance: AMILORIDE HYDROCHLORIDE\HYDROCHLOROTHIAZIDE
     Route: 065
  3. GLIFAGE [Concomitant]
     Active Substance: METFORMIN HYDROCHLORIDE
     Dosage: AT LUNCH
     Route: 065
  4. VASOGARD [Concomitant]
     Active Substance: CILOSTAZOL
     Route: 065
  5. HERBAL NOS [Concomitant]
     Active Substance: HERBALS
  6. MELOXICAM. [Concomitant]
     Active Substance: MELOXICAM
  7. FAMOTIDINA [Concomitant]
     Dosage: DAILY
     Route: 065
  8. LOSARTAN. [Concomitant]
     Active Substance: LOSARTAN
     Dosage: DAILY
     Route: 065
  9. FAMOTIDINE. [Concomitant]
     Active Substance: FAMOTIDINE
  10. TANDRILAX [Concomitant]
     Active Substance: ACETAMINOPHEN\CAFFEINE\CARISOPRODOL\DICLOFENAC SODIUM
     Indication: PAIN
  11. ACTEMRA [Suspect]
     Active Substance: TOCILIZUMAB
     Indication: RHEUMATOID ARTHRITIS
     Route: 042
     Dates: start: 20141220, end: 20150915
  12. HYDROCHLOROTHIAZIDE. [Concomitant]
     Active Substance: HYDROCHLOROTHIAZIDE
     Dosage: DAILY
     Route: 065
  13. MELOXICAM. [Concomitant]
     Active Substance: MELOXICAM
     Indication: BACK PAIN
     Dosage: DAILY
     Route: 065
  14. EXODUS [Concomitant]
     Active Substance: ESCITALOPRAM OXALATE
     Dosage: DAILY
     Route: 065

REACTIONS (20)
  - Syncope [Unknown]
  - Pain [Recovered/Resolved]
  - Chest pain [Unknown]
  - Visual impairment [Not Recovered/Not Resolved]
  - Feeling of despair [Unknown]
  - Asthma [Unknown]
  - Pain in extremity [Not Recovered/Not Resolved]
  - Urticaria [Unknown]
  - Abasia [Recovering/Resolving]
  - Pain in extremity [Unknown]
  - Pruritus [Recovered/Resolved]
  - Back pain [Recovering/Resolving]
  - Flatulence [Unknown]
  - Nervousness [Not Recovered/Not Resolved]
  - Blister [Recovering/Resolving]
  - Diabetes mellitus [Not Recovered/Not Resolved]
  - Joint lock [Unknown]
  - Pneumonia [Unknown]
  - Weight decreased [Unknown]
  - Memory impairment [Unknown]

NARRATIVE: CASE EVENT DATE: 201503
